FAERS Safety Report 9106550 (Version 2)
Quarter: 2013Q3

REPORT INFORMATION
  Report Type: Report from Study
  Country: BR (occurrence: BR)
  Receive Date: 20130221
  Receipt Date: 20130926
  Transmission Date: 20140515
  Serious: Yes (Hospitalization, Other)
  Sender: FDA-Public Use
  Company Number: PHHY2013BR004229

PATIENT
  Sex: Female
  Weight: 80 kg

DRUGS (14)
  1. GILENYA [Suspect]
     Indication: MULTIPLE SCLEROSIS
     Dosage: 0.5 MG, DAILY
     Route: 048
     Dates: start: 20120614
  2. RIVOTRIL [Concomitant]
     Dosage: UNK UKN, UNK
  3. OMEPRAZOLE [Concomitant]
     Dosage: UNK UKN, UNK
  4. DEPAKENE [Concomitant]
     Dosage: UNK UKN, UNK
  5. EXODUS [Concomitant]
     Dosage: UNK UKN, UNK
  6. ESCITALOPRAM OXALATE [Concomitant]
     Dosage: UNK UKN, UNK
  7. AMATO [Concomitant]
     Dosage: UNK UKN, UNK
  8. TRAMAL [Concomitant]
     Dosage: UNK UKN, UNK
  9. VITAMIN D [Concomitant]
     Dosage: UNK UKN, UNK
  10. OMEGA [Concomitant]
     Dosage: UNK UKN, UNK
  11. ANTIDEPRESSANTS [Concomitant]
     Dosage: UNK UKN, UNK
  12. LYRICA [Concomitant]
     Dosage: UNK
  13. HONEY [Concomitant]
  14. URICAL [Concomitant]
     Dosage: UNK

REACTIONS (7)
  - Stress [Recovered/Resolved]
  - Arrhythmia [Recovered/Resolved]
  - Heart rate increased [Recovering/Resolving]
  - Trigeminal neuralgia [Recovered/Resolved]
  - Malaise [Recovering/Resolving]
  - Multiple sclerosis relapse [Recovered/Resolved]
  - Gait disturbance [Recovered/Resolved]
